FAERS Safety Report 5907458-7 (Version None)
Quarter: 2008Q4

REPORT INFORMATION
  Report Type: 
  Country: None (occurrence: None)
  Receive Date: 20081003
  Receipt Date: 20080926
  Transmission Date: 20090506
  Serious: Yes (Other)
  Sender: FDA-Public Use
  Company Number: B0537818A

PATIENT
  Age: 72 Year
  Sex: Female
  Weight: 55 kg

DRUGS (2)
  1. BECOTIDE 250 [Suspect]
     Indication: ORAL LICHEN PLANUS
     Route: 002
     Dates: start: 20080911
  2. SOLUPRED [Suspect]
     Indication: ORAL LICHEN PLANUS
     Dosage: 3TAB PER DAY
     Route: 048
     Dates: start: 20080813

REACTIONS (6)
  - ERYTHEMA [None]
  - INCORRECT ROUTE OF DRUG ADMINISTRATION [None]
  - OFF LABEL USE [None]
  - OVERDOSE [None]
  - SKIN ATROPHY [None]
  - SWELLING FACE [None]
